FAERS Safety Report 17523221 (Version 3)
Quarter: 2020Q2

REPORT INFORMATION
  Report Type: Spontaneous
  Country: TR (occurrence: TR)
  Receive Date: 20200311
  Receipt Date: 20200612
  Transmission Date: 20200713
  Serious: Yes (Other)
  Sender: FDA-Public Use
  Company Number: TR-ASTRAZENECA-2020SE34527

PATIENT
  Age: 63 Year
  Sex: Male

DRUGS (7)
  1. CRESTOR [Suspect]
     Active Substance: ROSUVASTATIN CALCIUM
     Dosage: 10.0MG UNKNOWN
     Route: 048
     Dates: start: 20200305
  2. BELOC [Concomitant]
     Dosage: 50.0MG UNKNOWN
     Dates: start: 202003, end: 202006
  3. CORASPIN [Concomitant]
     Active Substance: ASPIRIN
  4. PANTO [Concomitant]
     Active Substance: PANTOPRAZOLE SODIUM
     Dosage: FOR EVERY 2-3 OTHER DAY.
  5. LIPITOR [Concomitant]
     Active Substance: ATORVASTATIN CALCIUM
  6. CRESTOR [Suspect]
     Active Substance: ROSUVASTATIN CALCIUM
     Dosage: 10.0MG UNKNOWN
     Route: 048
     Dates: end: 20191205
  7. PLAVIX [Concomitant]
     Active Substance: CLOPIDOGREL BISULFATE
     Dosage: 75.0MG UNKNOWN

REACTIONS (8)
  - Syncope [Recovered/Resolved]
  - Hypotension [Unknown]
  - Arthralgia [Unknown]
  - Paraesthesia [Recovered/Resolved]
  - Dizziness [Unknown]
  - Atrioventricular block complete [Unknown]
  - Myalgia [Unknown]
  - Neuropathy peripheral [Unknown]

NARRATIVE: CASE EVENT DATE: 20190515
